FAERS Safety Report 4583600-8 (Version None)
Quarter: 2005Q1

REPORT INFORMATION
  Report Type: 
  Country: None (occurrence: None)
  Receive Date: 20050211
  Receipt Date: 20050201
  Transmission Date: 20050727
  Serious: Yes (Other)
  Sender: FDA-Public Use
  Company Number: 2005024297

PATIENT
  Age: 64 Year
  Sex: Female
  Weight: 57.1532 kg

DRUGS (7)
  1. CELEBREX [Suspect]
     Indication: OSTEOARTHRITIS
     Dosage: 200 MG (100 MG, 2 IN 1 D), ORAL
     Route: 048
     Dates: start: 20040201
  2. TRIAMTERENE (TRIAMTERENE) [Concomitant]
  3. CALCIUM (CALCIUM) [Concomitant]
  4. METHYLCELLULOSE (METHYLCELLULOSE) [Concomitant]
  5. VITAMINS (VITAMINS) [Concomitant]
  6. ACETYLSALICYLIC ACID SRT [Concomitant]
  7. LOSARTAN POTASSIUM [Concomitant]

REACTIONS (2)
  - DRUG EFFECT DECREASED [None]
  - PAIN [None]
